FAERS Safety Report 7240722-0 (Version None)
Quarter: 2011Q1

REPORT INFORMATION
  Report Type: 
  Country: None (occurrence: None)
  Receive Date: 20110124
  Receipt Date: 20100617
  Transmission Date: 20110831
  Serious: Yes (Other)
  Sender: FDA-Public Use
  Company Number: US-KINGPHARMUSA00001-K201000797

PATIENT
  Sex: Male
  Weight: 68.027 kg

DRUGS (2)
  1. EPIPEN [Suspect]
     Dosage: 0.3 MG, SINGLE
     Route: 030
     Dates: start: 20100615, end: 20100615
  2. EPIPEN [Suspect]
     Indication: ALLERGY TO ARTHROPOD STING
     Dosage: 0.3 MG, SINGLE
     Route: 030
     Dates: start: 20100501, end: 20100501

REACTIONS (2)
  - DRUG INEFFECTIVE [None]
  - EXPIRED DRUG ADMINISTERED [None]
